FAERS Safety Report 8163633-5 (Version None)
Quarter: 2012Q1

REPORT INFORMATION
  Report Type: 
  Country: None (occurrence: None)
  Receive Date: 20120224
  Receipt Date: 20120216
  Transmission Date: 20120608
  Serious: Yes (Other)
  Sender: FDA-Public Use
  Company Number: DE-BAYER-2012-016198

PATIENT
  Age: 50 Year
  Sex: Female
  Weight: 56 kg

DRUGS (3)
  1. L-THYROX [Concomitant]
  2. ESTRADIOL VALERATE/DIENOGEST [Suspect]
     Indication: ORAL CONTRACEPTION
     Dosage: UNK
     Route: 048
     Dates: end: 20120216
  3. ESTRADIOL VALERATE/DIENOGEST [Suspect]
     Indication: MENOPAUSE

REACTIONS (8)
  - HYPERSENSITIVITY [None]
  - PRURITUS [None]
  - CHEST DISCOMFORT [None]
  - ERYTHEMA [None]
  - SWELLING FACE [None]
  - METRORRHAGIA [None]
  - MUSCULOSKELETAL DISCOMFORT [None]
  - SPEECH DISORDER [None]
